FAERS Safety Report 18545114 (Version 2)
Quarter: 2021Q1

REPORT INFORMATION
  Report Type: Spontaneous
  Country: US (occurrence: US)
  Receive Date: 20201125
  Receipt Date: 20210216
  Transmission Date: 20210419
  Serious: Yes (Other)
  Sender: FDA-Public Use
  Company Number: US-PFIZER INC-2019308618

PATIENT
  Age: 74 Year
  Sex: Female

DRUGS (2)
  1. PREMARIN [Suspect]
     Active Substance: ESTROGENS, CONJUGATED
     Indication: PAIN
  2. PREMARIN [Suspect]
     Active Substance: ESTROGENS, CONJUGATED
     Indication: SCAR
     Dosage: UNK

REACTIONS (3)
  - Off label use [Unknown]
  - Memory impairment [Unknown]
  - Brain neoplasm [Unknown]
